FAERS Safety Report 12677774 (Version 1)
Quarter: 2016Q3

REPORT INFORMATION
  Report Type: Spontaneous
  Country: US (occurrence: US)
  Receive Date: 20160823
  Receipt Date: 20160823
  Transmission Date: 20161109
  Serious: No
  Sender: FDA-Public Use
  Company Number: US-FRI-1000086195

PATIENT
  Age: 16 Year
  Sex: Male

DRUGS (3)
  1. SAPHRIS [Suspect]
     Active Substance: ASENAPINE MALEATE
     Dosage: 5 MG, 1/2 TABLET DAILY
     Dates: start: 20160710
  2. SAPHRIS [Suspect]
     Active Substance: ASENAPINE MALEATE
     Indication: MOOD SWINGS
     Dosage: 5 MG
     Dates: start: 201601, end: 201601
  3. SAPHRIS [Suspect]
     Active Substance: ASENAPINE MALEATE
     Dosage: 5 MG, 1/2 TABLET DAILY
     Dates: start: 201601, end: 201603

REACTIONS (6)
  - Product use issue [Not Recovered/Not Resolved]
  - Mood swings [Recovered/Resolved]
  - Intentional product misuse [Not Recovered/Not Resolved]
  - Off label use [Not Recovered/Not Resolved]
  - Lethargy [Recovered/Resolved]
  - Drug screen positive [Not Recovered/Not Resolved]

NARRATIVE: CASE EVENT DATE: 201601
